FAERS Safety Report 11729411 (Version 1)
Quarter: 2015Q4

REPORT INFORMATION
  Report Type: Spontaneous
  Country: US (occurrence: US)
  Receive Date: 20151112
  Receipt Date: 20151112
  Transmission Date: 20160304
  Serious: No
  Sender: FDA-Public Use
  Company Number: US-CUMBERLAND PHARMACEUTICALS INC.-1044119

PATIENT
  Sex: Female

DRUGS (1)
  1. KRISTALOSE [Suspect]
     Active Substance: LACTULOSE
     Indication: CONSTIPATION
     Route: 048

REACTIONS (1)
  - Drug ineffective [None]
